FAERS Safety Report 22239566 (Version 2)
Quarter: 2023Q2

REPORT INFORMATION
  Report Type: Report from Study
  Country: IT (occurrence: IT)
  Receive Date: 20230421
  Receipt Date: 20230531
  Transmission Date: 20230722
  Serious: Yes (Hospitalization, Other)
  Sender: FDA-Public Use
  Company Number: None

PATIENT
  Age: 18 Year
  Sex: Female
  Weight: 44 kg

DRUGS (6)
  1. METHOTREXATE SODIUM [Suspect]
     Active Substance: METHOTREXATE SODIUM
     Indication: Acute lymphocytic leukaemia recurrent
     Dosage: 150 MG INFUSION OVER 30 MIN. + 1385 MG INFUSION OVER 23.5 HOURS
     Route: 065
     Dates: start: 20230314, end: 20230315
  2. VINCRISTINE [Suspect]
     Active Substance: VINCRISTINE
     Indication: Acute lymphocytic leukaemia recurrent
     Dosage: 2 MILLIGRAM DAILY;
     Route: 065
     Dates: start: 20230314, end: 20230320
  3. PURINETHOL [Suspect]
     Active Substance: MERCAPTOPURINE
     Indication: Acute lymphocytic leukaemia recurrent
     Dosage: 150 MILLIGRAM DAILY;
     Route: 065
     Dates: start: 20230314, end: 20230318
  4. CYTARABINE [Suspect]
     Active Substance: CYTARABINE
     Indication: Acute lymphocytic leukaemia recurrent
     Dosage: 3080 MG X 2 SUM.
     Route: 065
     Dates: start: 20230317, end: 20230317
  5. ONCASPAR [Suspect]
     Active Substance: PEGASPARGASE
     Indication: Acute lymphocytic leukaemia recurrent
     Dosage: 1540 IU (INTERNATIONAL UNIT) DAILY;
     Route: 065
     Dates: start: 20230320, end: 20230320
  6. LEUCOVORIN CALCIUM [Concomitant]
     Active Substance: LEUCOVORIN CALCIUM
     Indication: Product used for unknown indication
     Dosage: 23 MILLIGRAM DAILY; 23 MG/DAY X 3 SUMMERS.
     Route: 065
     Dates: start: 20230316, end: 20230317

REACTIONS (7)
  - Neutropenia [Recovered/Resolved]
  - Pancytopenia [Not Recovered/Not Resolved]
  - Pain [Recovering/Resolving]
  - Constipation [Recovering/Resolving]
  - Anaemia [Recovering/Resolving]
  - Photophobia [Not Recovered/Not Resolved]
  - Stomatitis [Recovered/Resolved]

NARRATIVE: CASE EVENT DATE: 20230317
